FAERS Safety Report 10238679 (Version 1)
Quarter: 2014Q2

REPORT INFORMATION
  Report Type: Spontaneous
  Country: US (occurrence: US)
  Receive Date: 20140616
  Receipt Date: 20140616
  Transmission Date: 20141212
  Serious: Yes (Hospitalization)
  Sender: FDA-Public Use
  Company Number: US-ENDO PHARMACEUTICALS INC.-OPCR20140086

PATIENT
  Age: 51 Year
  Sex: Female

DRUGS (1)
  1. OPANA ER 15 MG [Suspect]
     Indication: PAIN IN EXTREMITY
     Route: 048
     Dates: start: 20140204, end: 20140305

REACTIONS (2)
  - Dehydration [Not Recovered/Not Resolved]
  - Withdrawal syndrome [Not Recovered/Not Resolved]
